FAERS Safety Report 5500875-9 (Version None)
Quarter: 2007Q4

REPORT INFORMATION
  Report Type: 
  Country: None (occurrence: None)
  Receive Date: 20071029
  Receipt Date: 20071014
  Transmission Date: 20080405
  Serious: Yes (Hospitalization)
  Sender: FDA-Public Use
  Company Number: CA-JNJFOC-20071006801

PATIENT
  Age: 2 Year

DRUGS (1)
  1. INFANTS TYLENOL COLD [Suspect]
     Indication: ACCIDENTAL EXPOSURE
     Dosage: ^DRANK THE BOTTLE^
     Route: 048

REACTIONS (2)
  - ACCIDENTAL DRUG INTAKE BY CHILD [None]
  - ACCIDENTAL OVERDOSE [None]
